FAERS Safety Report 8882645 (Version 1)
Quarter: 2012Q4

REPORT INFORMATION
  Report Type: 
  Country: CA (occurrence: CA)
  Receive Date: 20121104
  Receipt Date: 20121104
  Transmission Date: 20130627
  Serious: Yes (Death, Other)
  Sender: FDA-Public Use
  Company Number: PHMT2006CA00855

PATIENT
  Sex: Female

DRUGS (8)
  1. SANDOSTATIN LAR [Suspect]
     Indication: METASTATIC CARCINOID TUMOUR
     Dosage: 30 mg, every 4 weeks
     Route: 030
     Dates: start: 20051209, end: 20080611
  2. SANDOSTATIN LAR [Suspect]
     Dosage: 40 mg, QMO
     Route: 030
  3. SANDOSTATIN LAR [Suspect]
     Dosage: 60 mg, QMO
     Route: 030
     Dates: end: 20080611
  4. ETOPOSIDE [Concomitant]
  5. PARIET [Concomitant]
  6. BUPROPION HYDROCHLORIDE [Concomitant]
  7. ATIVAN [Concomitant]
  8. CIPRALEX [Concomitant]

REACTIONS (27)
  - Death [Fatal]
  - Deep vein thrombosis [Recovered/Resolved]
  - Lymphoedema [Unknown]
  - Pain in extremity [Unknown]
  - Localised oedema [Unknown]
  - Weight increased [Unknown]
  - Blood pressure decreased [Unknown]
  - Syncope [Unknown]
  - Dizziness [Recovered/Resolved]
  - Oedema peripheral [Unknown]
  - Anaemia [Unknown]
  - Haemoglobin decreased [Unknown]
  - Disease progression [Unknown]
  - Injection site mass [Recovered/Resolved]
  - Hypertension [Unknown]
  - Photophobia [Unknown]
  - Injection site haemorrhage [Unknown]
  - Blood chromogranin A increased [Unknown]
  - Erythema [Unknown]
  - Flushing [Unknown]
  - Diarrhoea [Not Recovered/Not Resolved]
  - Nausea [Unknown]
  - Injection site pain [Unknown]
  - Fatigue [Unknown]
  - Abdominal pain [Unknown]
  - Flatulence [Unknown]
  - Heart rate increased [Unknown]
